FAERS Safety Report 15185856 (Version 5)
Quarter: 2020Q2

REPORT INFORMATION
  Report Type: Report from Study
  Country: TW (occurrence: TW)
  Receive Date: 20180723
  Receipt Date: 20200622
  Transmission Date: 20200713
  Serious: Yes (Death, Hospitalization)
  Sender: FDA-Public Use
  Company Number: TW-B.I. PHARMACEUTICALS,INC./RIDGEFIELD-2018-BI-035890

PATIENT
  Age: 71 Year
  Sex: Male
  Weight: 53 kg

DRUGS (2)
  1. NEOMYCIN. [Concomitant]
     Active Substance: NEOMYCIN
     Indication: INFECTION PROPHYLAXIS
     Dosage: DOSE: TUBE (TUB)
     Route: 061
     Dates: start: 20180512, end: 20180526
  2. OFEV [Suspect]
     Active Substance: NINTEDANIB
     Indication: IDIOPATHIC PULMONARY FIBROSIS
     Dosage: DAILY DOSE: 64MG
     Route: 048
     Dates: start: 20180226, end: 20180316

REACTIONS (3)
  - Hepatitis [Fatal]
  - Idiopathic pulmonary fibrosis [Fatal]
  - Oral candidiasis [Fatal]

NARRATIVE: CASE EVENT DATE: 20180316
